FAERS Safety Report 7600134-4 (Version None)
Quarter: 2011Q3

REPORT INFORMATION
  Report Type: 
  Country: None (occurrence: None)
  Receive Date: 20110711
  Receipt Date: 20110627
  Transmission Date: 20111222
  Serious: Yes (Hospitalization)
  Sender: FDA-Public Use
  Company Number: PHHY2011MX34544

PATIENT
  Sex: Female

DRUGS (2)
  1. TRILEPTAL [Suspect]
     Indication: ANGIOPATHY
     Dosage: 2 TABLETS (300 MG) PER DAY
     Dates: start: 20101005, end: 20110309
  2. TRILEPTAL [Suspect]
     Dosage: 0.5 DF, (300 MG)
     Dates: start: 20110309, end: 20110401

REACTIONS (4)
  - FALL [None]
  - INJURY [None]
  - SCIATIC NERVE INJURY [None]
  - CYST [None]
